FAERS Safety Report 18978858 (Version 1)
Quarter: 2021Q1

REPORT INFORMATION
  Report Type: Spontaneous
  Country: CM (occurrence: CM)
  Receive Date: 20210308
  Receipt Date: 20210308
  Transmission Date: 20210420
  Serious: Yes (Other)
  Sender: FDA-Public Use
  Company Number: CM-LUPIN PHARMACEUTICALS INC.-2021-02636

PATIENT
  Age: 59 Year
  Sex: Male

DRUGS (4)
  1. QUININE [Suspect]
     Active Substance: QUININE
     Indication: MALARIA
  2. QUININE [Suspect]
     Active Substance: QUININE
     Indication: COVID-19
     Dosage: 500 MILLIGRAM, FLOW RATE OF 42 DROPS/MINUTE; INJECTABLE IN 5% GLUCOSE 500CC
     Route: 065
  3. GLUCOSE [Concomitant]
     Active Substance: DEXTROSE
     Indication: VEHICLE SOLUTION USE
     Dosage: 500 MILLIGRAM, QUININE INJECTABLE IN 5% GLUCOSE 500CC
     Route: 065
  4. ARTEMETHER + LUMEFANTRINE [Concomitant]
     Active Substance: ARTEMETHER\LUMEFANTRINE
     Indication: MALARIA
     Dosage: UNK, 80/480MG
     Route: 048

REACTIONS (1)
  - Off label use [Unknown]
